FAERS Safety Report 5761982-9 (Version None)
Quarter: 2008Q2

REPORT INFORMATION
  Report Type: 
  Country: None (occurrence: None)
  Receive Date: 20080603
  Receipt Date: 20080527
  Transmission Date: 20081010
  Serious: Yes (Hospitalization, Other)
  Sender: FDA-Public Use
  Company Number: 2008SP007623

PATIENT
  Age: 52 Year
  Sex: Male
  Weight: 56 kg

DRUGS (12)
  1. PEG-INTRON [Suspect]
     Indication: HEPATITIS C
     Dosage: 80 MCG; QW; SC, 60 MCG; QW; SC
     Route: 058
     Dates: start: 20080228, end: 20080321
  2. PEG-INTRON [Suspect]
     Indication: HEPATITIS C
     Dosage: 80 MCG; QW; SC, 60 MCG; QW; SC
     Route: 058
     Dates: start: 20080327, end: 20080327
  3. REBETOL [Suspect]
     Indication: HEPATITIS C
     Dosage: 600 MG; QD; PO, 400 MG; QD; PO, 200 MG; QD; PO
     Route: 048
     Dates: start: 20080228, end: 20080312
  4. REBETOL [Suspect]
     Indication: HEPATITIS C
     Dosage: 600 MG; QD; PO, 400 MG; QD; PO, 200 MG; QD; PO
     Route: 048
     Dates: start: 20080313, end: 20080326
  5. REBETOL [Suspect]
     Indication: HEPATITIS C
     Dosage: 600 MG; QD; PO, 400 MG; QD; PO, 200 MG; QD; PO
     Route: 048
     Dates: start: 20080327, end: 20080401
  6. NOVORAPID [Concomitant]
  7. RABEPRAZOLE SODIUM [Concomitant]
  8. DIOVAN [Concomitant]
  9. GLUFAST [Concomitant]
  10. URSO 250 [Concomitant]
  11. GASMOTIN [Concomitant]
  12. CYANOCOBALAMIN [Concomitant]

REACTIONS (4)
  - ANAEMIA [None]
  - DIABETES MELLITUS INADEQUATE CONTROL [None]
  - NEPHROTIC SYNDROME [None]
  - PLATELET COUNT DECREASED [None]
